FAERS Safety Report 11832265 (Version 1)
Quarter: 2015Q4

REPORT INFORMATION
  Report Type: Spontaneous
  Country: US (occurrence: US)
  Receive Date: 20151214
  Receipt Date: 20151214
  Transmission Date: 20160305
  Serious: Yes (Other)
  Sender: FDA-Public Use
  Company Number: US-BAYER-2015-483013

PATIENT
  Age: 72 Year
  Sex: Female
  Weight: 61.68 kg

DRUGS (3)
  1. BAYER GENUINE ASPIRIN [Suspect]
     Active Substance: ASPIRIN
     Indication: CARDIOVASCULAR DISORDER
     Dosage: UNK UNK, QD
  2. LISINOPRIL. [Concomitant]
     Active Substance: LISINOPRIL
  3. CITRACAL PLUS MAGNESIUM [Suspect]
     Active Substance: CALCIUM\MAGNESIUM\VITAMIN D\ZINC
     Indication: VITAMIN SUPPLEMENTATION
     Dosage: UNK, QD
     Route: 048

REACTIONS (6)
  - Choking [Unknown]
  - Blood calcium decreased [Unknown]
  - Product use issue [Unknown]
  - Product use issue [None]
  - Product difficult to swallow [None]
  - Blood electrolytes decreased [Unknown]
